FAERS Safety Report 4975455-4 (Version None)
Quarter: 2006Q2

REPORT INFORMATION
  Report Type: 
  Country: None (occurrence: None)
  Receive Date: 20060417
  Receipt Date: 20060417
  Transmission Date: 20061013
  Serious: Yes (Other)
  Sender: FDA-Public Use
  Company Number: None

PATIENT
  Sex: Female
  Weight: 98 kg

DRUGS (2)
  1. CYCLOPHOSPHAMIDE [Suspect]
     Indication: BREAST CANCER
     Dosage: 6996 MG
     Dates: start: 20060120, end: 20060330
  2. DOXORUBICIN HCL [Suspect]
     Dosage: 698 MG
     Dates: start: 20060120, end: 20060330

REACTIONS (1)
  - LEUKOPENIA [None]
